FAERS Safety Report 15369188 (Version 3)
Quarter: 2019Q2

REPORT INFORMATION
  Report Type: Report from Study
  Country: US (occurrence: US)
  Receive Date: 20180911
  Receipt Date: 20190513
  Transmission Date: 20190711
  Serious: No
  Sender: FDA-Public Use
  Company Number: PHHY2018US095155

PATIENT
  Sex: Female
  Weight: 77.11 kg

DRUGS (1)
  1. COSENTYX [Suspect]
     Active Substance: SECUKINUMAB
     Indication: PSORIASIS
     Dosage: 300 MG, QMO
     Route: 058
     Dates: start: 201803

REACTIONS (5)
  - Ear infection [Unknown]
  - Exposure to toxic agent [Unknown]
  - Drug ineffective [Unknown]
  - Psoriasis [Unknown]
  - Therapeutic response shortened [Unknown]
